FAERS Safety Report 7478996-3 (Version None)
Quarter: 2011Q2

REPORT INFORMATION
  Report Type: 
  Country: None (occurrence: None)
  Receive Date: 20110511
  Receipt Date: 20110511
  Transmission Date: 20111010
  Serious: Yes (Death)
  Sender: FDA-Public Use
  Company Number: None

PATIENT
  Sex: Male
  Weight: 68.0396 kg

DRUGS (1)
  1. ARICEPT [Suspect]
     Indication: MEMORY IMPAIRMENT
     Dates: start: 20080320

REACTIONS (4)
  - INTRA-ABDOMINAL HAEMORRHAGE [None]
  - ASTHENIA [None]
  - FALL [None]
  - MALAISE [None]
